FAERS Safety Report 9439365 (Version 2)
Quarter: 2013Q4

REPORT INFORMATION
  Report Type: Spontaneous
  Country: IT (occurrence: IT)
  Receive Date: 20130805
  Receipt Date: 20131107
  Transmission Date: 20140711
  Serious: Yes (Other)
  Sender: FDA-Public Use
  Company Number: IT-ROCHE-1256801

PATIENT
  Age: 61 Year
  Sex: Male
  Weight: 75 kg

DRUGS (6)
  1. AVASTIN [Suspect]
     Indication: LUNG NEOPLASM MALIGNANT
     Route: 042
     Dates: start: 20121004, end: 20121004
  2. PACLITAXEL [Suspect]
     Indication: LUNG NEOPLASM MALIGNANT
     Route: 042
     Dates: start: 20121004, end: 20121004
  3. CARBOPLATIN [Suspect]
     Indication: LUNG NEOPLASM MALIGNANT
     Route: 042
     Dates: start: 20121004, end: 20121004
  4. RANIDIL [Concomitant]
     Route: 042
     Dates: start: 20121004, end: 20121004
  5. SOLDESAM [Concomitant]
     Route: 042
     Dates: start: 20121004, end: 20121004
  6. ONDANSETRON HIKMA [Concomitant]
     Route: 042
     Dates: start: 20121004, end: 20121004

REACTIONS (4)
  - Asthenia [Unknown]
  - Dyspnoea [Unknown]
  - Somnolence [Unknown]
  - Stomatitis [Unknown]
